FAERS Safety Report 17346294 (Version 1)
Quarter: 2020Q1

REPORT INFORMATION
  Report Type: Report from Study
  Country: US (occurrence: US)
  Receive Date: 20200129
  Receipt Date: 20200129
  Transmission Date: 20200409
  Serious: No
  Sender: FDA-Public Use
  Company Number: US-EXELIXIS-CABO-19022566

PATIENT
  Sex: Male

DRUGS (2)
  1. COMETRIQ [Suspect]
     Active Substance: CABOZANTINIB S-MALATE
     Dosage: 80 MG, QD
     Route: 048
  2. COMETRIQ [Suspect]
     Active Substance: CABOZANTINIB S-MALATE
     Indication: PRODUCT USED FOR UNKNOWN INDICATION
     Dosage: 100 MG, QD
     Route: 048
     Dates: start: 20190621

REACTIONS (7)
  - Dry skin [Recovering/Resolving]
  - Fatigue [Unknown]
  - Pulmonary oedema [Unknown]
  - Weight decreased [Recovering/Resolving]
  - Nausea [Unknown]
  - Decreased appetite [Unknown]
  - Blood sodium decreased [Recovering/Resolving]
